FAERS Safety Report 10521798 (Version 1)
Quarter: 2014Q4

REPORT INFORMATION
  Report Type: Spontaneous
  Country: HU (occurrence: None)
  Receive Date: 20141014
  Receipt Date: 20141014
  Transmission Date: 20150528
  Serious: Yes (Other)
  Sender: FDA-Public Use
  Company Number: 2014HU008670

PATIENT
  Sex: Male

DRUGS (1)
  1. ELIGARD [Suspect]
     Active Substance: LEUPROLIDE ACETATE
     Indication: PROSTATE CANCER
     Dates: start: 20140610, end: 20140610

REACTIONS (15)
  - Wheezing [None]
  - Fall [None]
  - Asthenia [None]
  - Weight decreased [None]
  - Syncope [None]
  - Nasopharyngitis [None]
  - Chills [None]
  - Altered state of consciousness [None]
  - Loss of consciousness [None]
  - Dyspnoea [None]
  - Pyrexia [None]
  - Gait disturbance [None]
  - Dizziness [None]
  - Hypertonia [None]
  - Cachexia [None]

NARRATIVE: CASE EVENT DATE: 20140614
